FAERS Safety Report 11086777 (Version 1)
Quarter: 2015Q2

REPORT INFORMATION
  Report Type: Spontaneous
  Country: CN (occurrence: CN)
  Receive Date: 20150504
  Receipt Date: 20150504
  Transmission Date: 20150821
  Serious: No
  Sender: FDA-Public Use
  Company Number: CN-JNJFOC-20150419634

PATIENT
  Age: 56 Year
  Sex: Female

DRUGS (3)
  1. DUROGESIC D-TRANS [Suspect]
     Active Substance: FENTANYL
     Indication: CANCER PAIN
     Route: 062
  2. TRAMADOL [Concomitant]
     Active Substance: TRAMADOL
     Route: 065
  3. MORPHINE [Concomitant]
     Active Substance: MORPHINE
     Route: 065

REACTIONS (4)
  - Vomiting [Recovered/Resolved]
  - Wrong technique in drug usage process [Unknown]
  - Dysuria [Recovered/Resolved]
  - Abdominal distension [Recovered/Resolved]
